FAERS Safety Report 7349820-4 (Version None)
Quarter: 2011Q1

REPORT INFORMATION
  Report Type: 
  Country: None (occurrence: None)
  Receive Date: 20110309
  Receipt Date: 20110309
  Transmission Date: 20110831
  Serious: No
  Sender: FDA-Public Use
  Company Number: None

PATIENT
  Age: 73 Year
  Sex: Male

DRUGS (1)
  1. BACTRIM [Suspect]
     Dates: start: 20090328, end: 20090403

REACTIONS (8)
  - PRURITUS [None]
  - RASH [None]
  - JAUNDICE [None]
  - CHROMATURIA [None]
  - LIVER INJURY [None]
  - PYREXIA [None]
  - VOMITING [None]
  - FAECES DISCOLOURED [None]
